FAERS Safety Report 9798735 (Version 2)
Quarter: 2015Q3

REPORT INFORMATION
  Report Type: Spontaneous
  Country: US (occurrence: US)
  Receive Date: 20140106
  Receipt Date: 20150806
  Transmission Date: 20151125
  Serious: No
  Sender: FDA-Public Use
  Company Number: US-GILEAD-2010-0029973

PATIENT
  Age: 65 Year
  Sex: Male
  Weight: 72.57 kg

DRUGS (21)
  1. POLYSPORIN [Concomitant]
     Active Substance: BACITRACIN ZINC\POLYMYXIN B SULFATE
  2. MULTIVITAMIN [Concomitant]
     Active Substance: VITAMINS
  3. FOLIC ACID. [Concomitant]
     Active Substance: FOLIC ACID
  4. ASTEPRO [Concomitant]
     Active Substance: AZELASTINE HYDROCHLORIDE
  5. ZYRTEC [Concomitant]
     Active Substance: CETIRIZINE HYDROCHLORIDE
  6. FEXOFENADINE [Concomitant]
     Active Substance: FEXOFENADINE\FEXOFENADINE HYDROCHLORIDE
  7. FUROSEMIDE. [Concomitant]
     Active Substance: FUROSEMIDE
  8. FLUTICASONE [Concomitant]
     Active Substance: FLUTICASONE\FLUTICASONE PROPIONATE
  9. LETAIRIS [Suspect]
     Active Substance: AMBRISENTAN
     Indication: PULMONARY ARTERIAL HYPERTENSION
     Route: 048
     Dates: start: 20100127
  10. FLOLAN [Concomitant]
     Active Substance: EPOPROSTENOL SODIUM
  11. LOPERAMIDE [Concomitant]
     Active Substance: LOPERAMIDE
  12. OXYGEN. [Concomitant]
     Active Substance: OXYGEN
  13. CALTRATE W/VIT D [Concomitant]
  14. PEPCID [Concomitant]
     Active Substance: FAMOTIDINE
  15. TYLENOL EX-STR [Concomitant]
  16. WARFARIN [Concomitant]
     Active Substance: WARFARIN
  17. MECLIZINE [Concomitant]
     Active Substance: MECLIZINE\MECLIZINE HYDROCHLORIDE
  18. POTASSIUM CHLORIDE. [Concomitant]
     Active Substance: POTASSIUM CHLORIDE
  19. LUXIQ [Concomitant]
     Active Substance: BETAMETHASONE VALERATE
  20. ALPRAZOLAM. [Concomitant]
     Active Substance: ALPRAZOLAM
  21. BISACODYL. [Concomitant]
     Active Substance: BISACODYL

REACTIONS (2)
  - Abdominal discomfort [Unknown]
  - Malaise [Unknown]
